FAERS Safety Report 8579793-8 (Version None)
Quarter: 2012Q3

REPORT INFORMATION
  Report Type: 
  Country: None (occurrence: None)
  Receive Date: 20120808
  Receipt Date: 20120801
  Transmission Date: 20120928
  Serious: Yes (Hospitalization)
  Sender: FDA-Public Use
  Company Number: DE-ABBOTT-12P-062-0950781-00

PATIENT
  Sex: Male

DRUGS (4)
  1. BUDENOFALK [Concomitant]
     Indication: CROHN'S DISEASE
  2. PENTASA [Concomitant]
     Indication: CROHN'S DISEASE
  3. HUMIRA [Suspect]
     Route: 058
     Dates: start: 20120701
  4. HUMIRA [Suspect]
     Indication: CROHN'S DISEASE
     Route: 058
     Dates: start: 20120402, end: 20120701

REACTIONS (7)
  - SLEEP DISORDER [None]
  - HYPERTENSION [None]
  - PARAESTHESIA [None]
  - HAND-ARM VIBRATION SYNDROME [None]
  - DELUSION [None]
  - HYPOAESTHESIA [None]
  - DEPRESSION [None]
